FAERS Safety Report 4633144-X (Version None)
Quarter: 2005Q2

REPORT INFORMATION
  Report Type: 
  Country: None (occurrence: None)
  Receive Date: 20050412
  Receipt Date: 20050404
  Transmission Date: 20051028
  Serious: Yes (Life-Threatening)
  Sender: FDA-Public Use
  Company Number: IT-GLAXOSMITHKLINE-B0377302A

PATIENT
  Age: 82 Year
  Sex: Male

DRUGS (1)
  1. GLAZIDIM [Suspect]

REACTIONS (2)
  - LOSS OF CONSCIOUSNESS [None]
  - TONIC CLONIC MOVEMENTS [None]
